FAERS Safety Report 6865458-7 (Version None)
Quarter: 2010Q3

REPORT INFORMATION
  Report Type: 
  Country: None (occurrence: None)
  Receive Date: 20100721
  Receipt Date: 20081106
  Transmission Date: 20110219
  Serious: No
  Sender: FDA-Public Use
  Company Number: US-PFIZER INC-2008028905

PATIENT
  Sex: Male
  Weight: 81.8 kg

DRUGS (3)
  1. CHANTIX [Suspect]
     Indication: SMOKING CESSATION THERAPY
     Dates: start: 20080115
  2. ANTIHYPERTENSIVES [Concomitant]
  3. LIPITOR [Concomitant]

REACTIONS (2)
  - DEPRESSION [None]
  - TOBACCO USER [None]
